FAERS Safety Report 8365184-1 (Version None)
Quarter: 2012Q2

REPORT INFORMATION
  Report Type: 
  Country: None (occurrence: None)
  Receive Date: 20120516
  Receipt Date: 20120403
  Transmission Date: 20120825
  Serious: No
  Sender: FDA-Public Use
  Company Number: US-ASTRAZENECA-2012SE21912

PATIENT
  Age: 87 Year
  Sex: Female
  Weight: 59 kg

DRUGS (9)
  1. CLOTRIMAZOLE [Concomitant]
  2. NEXIUM [Suspect]
     Route: 048
     Dates: start: 20120402
  3. CHLORHEXIDINE GLUCONATE [Concomitant]
  4. COSOPT [Concomitant]
     Indication: EYE DISORDER
  5. NEXIUM [Suspect]
     Route: 048
     Dates: start: 20120402
  6. DOCUSATE NA [Concomitant]
  7. ACETAMINOPHEN [Concomitant]
  8. NEXIUM [Suspect]
     Indication: DYSPEPSIA
     Route: 048
     Dates: start: 20120402
  9. NEXIUM [Suspect]
     Indication: HICCUPS
     Route: 048
     Dates: start: 20120402

REACTIONS (7)
  - DRUG INEFFECTIVE FOR UNAPPROVED INDICATION [None]
  - NAUSEA [None]
  - INTENTIONAL DRUG MISUSE [None]
  - HICCUPS [None]
  - OFF LABEL USE [None]
  - BLOOD GLUCOSE INCREASED [None]
  - RESTLESSNESS [None]
